FAERS Safety Report 14572808 (Version 2)
Quarter: 2018Q1

REPORT INFORMATION
  Report Type: Spontaneous
  Country: IE (occurrence: IE)
  Receive Date: 20180226
  Receipt Date: 20180319
  Transmission Date: 20180509
  Serious: Yes (Hospitalization)
  Sender: FDA-Public Use
  Company Number: IE-CURIUM PHARMACEUTICALS-201800028

PATIENT
  Age: 51 Year
  Sex: Female

DRUGS (1)
  1. SODIUM IODINE (I-131) CAPSULE [Suspect]
     Active Substance: SODIUM IODIDE I-131
     Indication: HYPERTHYROIDISM
     Route: 048
     Dates: start: 20180122, end: 20180122

REACTIONS (5)
  - Diarrhoea [Recovered/Resolved]
  - Hypothyroidism [Not Recovered/Not Resolved]
  - Abdominal discomfort [Recovered/Resolved]
  - Loss of consciousness [Recovered/Resolved]
  - Goitre [Recovering/Resolving]

NARRATIVE: CASE EVENT DATE: 20180123
